FAERS Safety Report 22182251 (Version 1)
Quarter: 2023Q2

REPORT INFORMATION
  Report Type: Spontaneous
  Country: CN (occurrence: None)
  Receive Date: 20230406
  Receipt Date: 20230406
  Transmission Date: 20230721
  Serious: Yes (Disabling, Other)
  Sender: FDA-Public Use
  Company Number: 2023A075818

PATIENT
  Age: 20025 Day
  Sex: Female
  Weight: 53.9 kg

DRUGS (2)
  1. FULVESTRANT [Suspect]
     Active Substance: FULVESTRANT
     Indication: Radical mastectomy
     Route: 030
     Dates: start: 20230228, end: 20230228
  2. DALPICICLIB [Suspect]
     Active Substance: DALPICICLIB
     Indication: Radical mastectomy
     Route: 048
     Dates: start: 20230215, end: 20230311

REACTIONS (5)
  - Myelosuppression [Recovering/Resolving]
  - Liver injury [Recovering/Resolving]
  - Immune system disorder [Unknown]
  - Metastases to spine [Unknown]
  - Asthenia [Unknown]

NARRATIVE: CASE EVENT DATE: 20230301
